FAERS Safety Report 4374606-2 (Version None)
Quarter: 2004Q2

REPORT INFORMATION
  Report Type: 
  Country: None (occurrence: None)
  Receive Date: 20040609
  Receipt Date: 20040603
  Transmission Date: 20050107
  Serious: Yes (Other)
  Sender: FDA-Public Use
  Company Number: GB-ROCHE-369733

PATIENT

DRUGS (2)
  1. VALCYTE [Suspect]
     Indication: DRUG USE FOR UNKNOWN INDICATION
     Route: 065
  2. AMLODIPINE [Concomitant]

REACTIONS (1)
  - STEVENS-JOHNSON SYNDROME [None]
